FAERS Safety Report 8605995-8 (Version None)
Quarter: 2012Q3

REPORT INFORMATION
  Report Type: 
  Country: None (occurrence: None)
  Receive Date: 20120820
  Receipt Date: 20120814
  Transmission Date: 20120928
  Serious: Yes (Other)
  Sender: FDA-Public Use
  Company Number: US-PFIZER INC-2012182922

PATIENT
  Age: 68 Year
  Sex: Female
  Weight: 127 kg

DRUGS (4)
  1. LORAZEPAM [Concomitant]
     Dosage: UNK
  2. TOVIAZ [Suspect]
     Indication: BLADDER DISORDER
     Dosage: 4 MG, 2X/DAY
     Route: 048
     Dates: start: 20111201
  3. LYRICA [Concomitant]
     Indication: FIBROMYALGIA
     Dosage: UNK
  4. BACTRIM [Concomitant]
     Dosage: UNK

REACTIONS (1)
  - ARTHROPATHY [None]
